FAERS Safety Report 8811799 (Version 1)
Quarter: 2012Q4

REPORT INFORMATION
  Report Type: 
  Country: US (occurrence: US)
  Receive Date: 20120927
  Receipt Date: 20120927
  Transmission Date: 20130627
  Serious: Yes (Hospitalization, Disabling)
  Sender: FDA-Public Use
  Company Number: US-GLAXOSMITHKLINE-A0814563A

PATIENT
  Age: 57 Year
  Sex: Male
  Weight: 129.5 kg

DRUGS (7)
  1. AVANDIA [Suspect]
     Indication: TYPE 2 DIABETES MELLITUS
     Dosage: 8MG Per day
     Route: 048
     Dates: start: 2005
  2. MICARDIS [Concomitant]
  3. VIAGRA [Concomitant]
  4. NORVASC [Concomitant]
  5. NEXIUM [Concomitant]
  6. FLOMAX [Concomitant]
  7. LISINOPRIL [Concomitant]

REACTIONS (4)
  - Embolic stroke [Not Recovered/Not Resolved]
  - Heart rate irregular [Unknown]
  - Atrial fibrillation [Unknown]
  - Cardiac failure congestive [Unknown]
